FAERS Safety Report 13745616 (Version 1)
Quarter: 2017Q3

REPORT INFORMATION
  Report Type: Spontaneous
  Country: US (occurrence: US)
  Receive Date: 20170712
  Receipt Date: 20170712
  Transmission Date: 20171127
  Serious: Yes (Other)
  Sender: FDA-Public Use
  Company Number: None

PATIENT
  Age: 60 Year
  Sex: Female
  Weight: 74.91 kg

DRUGS (14)
  1. N-ACERYL CYSTEINE [Concomitant]
  2. CHONDROITIN WITH GLUCOSAMINE [Concomitant]
  3. COQ10 [Concomitant]
     Active Substance: UBIDECARENONE
  4. LETROZOLE 2.5MG [Suspect]
     Active Substance: LETROZOLE
     Indication: BREAST CANCER
     Route: 048
     Dates: start: 20170204, end: 20170510
  5. BAYER LOWDOSE [Concomitant]
  6. BIOTIN [Concomitant]
     Active Substance: BIOTIN
  7. ARMOUR THYROID [Concomitant]
     Active Substance: THYROID, PORCINE
  8. OMEGA 3 FISH OIL [Concomitant]
     Active Substance: FISH OIL\OMEGA-3 FATTY ACIDS
  9. VITAMIN B COMPLEX [Concomitant]
     Active Substance: CYANOCOBALAMIN\DEXPANTHENOL\NIACINAMIDE\PYRIDOXINE HYDROCHLORIDE\RIBOFLAVIN 5^-PHOSPHATE SODIUM\THIAMINE HYDROCHLORIDE\VITAMIN B COMPLEX
  10. ADULT 50+ PROBIOTIC [Concomitant]
  11. SPECIAL SPECTRUM VITAMIN [Concomitant]
  12. FOLIC ACID. [Concomitant]
     Active Substance: FOLIC ACID
  13. FLAXSEED [Concomitant]
     Active Substance: FLAX SEED
  14. VITAMIN D [Concomitant]
     Active Substance: CHOLECALCIFEROL

REACTIONS (4)
  - Genital burning sensation [None]
  - Stevens-Johnson syndrome [None]
  - Burn oral cavity [None]
  - Oral discomfort [None]

NARRATIVE: CASE EVENT DATE: 20170510
